FAERS Safety Report 6404585-5 (Version None)
Quarter: 2009Q4

REPORT INFORMATION
  Report Type: 
  Country: None (occurrence: None)
  Receive Date: 20091016
  Receipt Date: 20091006
  Transmission Date: 20100525
  Serious: Yes (Hospitalization, Other)
  Sender: FDA-Public Use
  Company Number: CA-ELI_LILLY_AND_COMPANY-CA200910001548

PATIENT
  Age: 58 Year
  Sex: Female

DRUGS (5)
  1. EVISTA [Suspect]
     Dosage: UNK, UNKNOWN
     Route: 065
  2. OXYCONTIN [Concomitant]
     Dosage: UNK, UNKNOWN
     Route: 065
  3. LEVOTHYROXINE SODIUM [Concomitant]
     Dosage: UNK, UNKNOWN
     Route: 065
  4. LORAZEPAM [Concomitant]
     Dosage: UNK, UNKNOWN
     Route: 065
  5. HYDROCHLOROTHIAZIDE [Concomitant]
     Dosage: 12.5 MG, DAILY (1/D)
     Route: 065

REACTIONS (5)
  - LYMPH NODE CANCER METASTATIC [None]
  - MUSCLE SPASMS [None]
  - ONYCHOCLASIS [None]
  - RENAL CANCER [None]
  - WITHDRAWAL SYNDROME [None]
